FAERS Safety Report 8447624-2 (Version None)
Quarter: 2012Q2

REPORT INFORMATION
  Report Type: 
  Country: None (occurrence: None)
  Receive Date: 20120619
  Receipt Date: 20120614
  Transmission Date: 20120825
  Serious: Yes (Other)
  Sender: FDA-Public Use
  Company Number: US-PERRIGO-12US003672

PATIENT
  Sex: Female
  Weight: 79.365 kg

DRUGS (1)
  1. NAPROXEN SODIUM AND PSEUDOEPHEDRINE HYDROCHLORIDE [Suspect]
     Indication: NASOPHARYNGITIS
     Dosage: ONE TABLET, SINGLE
     Route: 048
     Dates: start: 20120421, end: 20120421

REACTIONS (7)
  - MALAISE [None]
  - DRY MOUTH [None]
  - NAUSEA [None]
  - OEDEMA PERIPHERAL [None]
  - SOMNOLENCE [None]
  - ASTHENIA [None]
  - FEELING ABNORMAL [None]
